FAERS Safety Report 14358865 (Version 6)
Quarter: 2024Q1

REPORT INFORMATION
  Report Type: Report from Study
  Country: US (occurrence: US)
  Receive Date: 20180105
  Receipt Date: 20240314
  Transmission Date: 20240410
  Serious: No
  Sender: FDA-Public Use
  Company Number: US-SA-2018SA001253

PATIENT
  Age: 51 Year
  Sex: Female

DRUGS (9)
  1. DUPIXENT [Suspect]
     Active Substance: DUPILUMAB
     Indication: Dermatitis atopic
     Dosage: 300 MG, QOW
     Route: 058
     Dates: start: 20170501
  2. DEXAMETHASONE [Concomitant]
     Active Substance: DEXAMETHASONE
     Dosage: UNK
     Route: 065
  3. LORATADINE [Concomitant]
     Active Substance: LORATADINE
     Dosage: UNK
  4. METHOTREXATE [Concomitant]
     Active Substance: METHOTREXATE
     Dosage: UNK
  5. METHOTREXATE SODIUM [Concomitant]
     Active Substance: METHOTREXATE SODIUM
     Dosage: UNK
  6. ZOLPIDEM TARTRATE [Concomitant]
     Active Substance: ZOLPIDEM TARTRATE
     Dosage: UNK
  7. VITAMIN D2 [Concomitant]
     Active Substance: ERGOCALCIFEROL
     Dosage: UNK
  8. FOLIC ACID [Concomitant]
     Active Substance: FOLIC ACID
     Dosage: UNK
  9. CABERGOLINE [Concomitant]
     Active Substance: CABERGOLINE
     Dosage: UNK

REACTIONS (18)
  - Sleep disorder [Unknown]
  - Pain in extremity [Unknown]
  - Arthropathy [Unknown]
  - Influenza like illness [Unknown]
  - Condition aggravated [Unknown]
  - Feeling abnormal [Unknown]
  - Headache [Unknown]
  - Herpes virus infection [Unknown]
  - Condition aggravated [Unknown]
  - Dermatitis atopic [Unknown]
  - Skin lesion [Unknown]
  - Skin depigmentation [Unknown]
  - Dermatitis [Unknown]
  - Pruritus [Not Recovered/Not Resolved]
  - Dry skin [Unknown]
  - Skin exfoliation [Unknown]
  - Drug ineffective [Unknown]
  - Injection site mass [Unknown]

NARRATIVE: CASE EVENT DATE: 20170101
